FAERS Safety Report 8045970-8 (Version None)
Quarter: 2012Q1

REPORT INFORMATION
  Report Type: 
  Country: None (occurrence: None)
  Receive Date: 20120113
  Receipt Date: 20120105
  Transmission Date: 20120608
  Serious: Yes (Congenital Anomaly, Other)
  Sender: FDA-Public Use
  Company Number: FR-UCBSA-040449

PATIENT
  Sex: Male
  Weight: 3.62 kg

DRUGS (4)
  1. KEPPRA [Suspect]
     Route: 064
     Dates: start: 20110123, end: 20111005
  2. FOLIC ACID [Concomitant]
     Dosage: ONE TABLET DAILY
     Route: 064
     Dates: start: 20110123, end: 20111005
  3. KEPPRA [Suspect]
     Indication: EPILEPSY
     Route: 063
     Dates: start: 20110101
  4. ACETAMINOPHEN [Concomitant]
     Indication: HEADACHE
     Dosage: 1000 MG DAILY, RECIEVED IRREGULARLY
     Route: 064
     Dates: start: 20110101, end: 20111005

REACTIONS (3)
  - FOETAL EXPOSURE DURING PREGNANCY [None]
  - EXPOSURE DURING BREAST FEEDING [None]
  - CLEFT LIP [None]
